FAERS Safety Report 10051581 (Version 1)
Quarter: 2014Q2

REPORT INFORMATION
  Report Type: Spontaneous
  Country: TR (occurrence: TR)
  Receive Date: 20140401
  Receipt Date: 20140401
  Transmission Date: 20141212
  Serious: Yes (Other)
  Sender: FDA-Public Use
  Company Number: TR-ACTAVIS-2014-05850

PATIENT
  Sex: Female

DRUGS (3)
  1. PROPYLTHIOURACIL (AELLC) [Suspect]
     Indication: HYPERTHYROIDISM
     Dosage: UNK
     Route: 065
  2. LEVOBUPIVACAINE [Concomitant]
     Indication: NERVE BLOCK
     Dosage: 10 ML (0.375% SOL, DEEP BLOCK), 5 ML FOR SUPERFICIAL BLOCK
     Route: 051
  3. LEVOBUPIVACAINE [Concomitant]
     Indication: THYROIDECTOMY

REACTIONS (2)
  - Hepatic function abnormal [Unknown]
  - Maternal exposure during pregnancy [Unknown]
